FAERS Safety Report 20919625 (Version 4)
Quarter: 2022Q2

REPORT INFORMATION
  Report Type: Spontaneous
  Country: FR (occurrence: FR)
  Receive Date: 20220606
  Receipt Date: 20220624
  Transmission Date: 20220721
  Serious: Yes (Death, Other)
  Sender: FDA-Public Use
  Company Number: FR-JAZZ-2022-FR-015069

PATIENT

DRUGS (22)
  1. DEFITELIO [Suspect]
     Active Substance: DEFIBROTIDE SODIUM
     Indication: Venoocclusive liver disease
     Dosage: 1.5 MG/ML
     Route: 042
  2. DEFITELIO [Suspect]
     Active Substance: DEFIBROTIDE SODIUM
     Indication: Venoocclusive disease
     Dosage: 4 MG/ML (30 MG/6 HOURS)
     Route: 042
     Dates: start: 20220502, end: 20220505
  3. DEFITELIO [Suspect]
     Active Substance: DEFIBROTIDE SODIUM
     Dosage: 1.5 MILLIGRAM PER MILLILITRE
     Route: 042
  4. CHOLECALCIFEROL [Concomitant]
     Active Substance: CHOLECALCIFEROL
     Indication: Vitamin supplementation
     Dosage: 3 DROPS/DAY
     Route: 048
     Dates: start: 20220426
  5. CALCIUM CARBONATE\SODIUM ALGINATE [Concomitant]
     Active Substance: CALCIUM CARBONATE\SODIUM ALGINATE
     Indication: Gastrooesophageal reflux disease
     Dosage: 2 ML/4 HOURS
     Route: 048
     Dates: start: 20220426
  6. ONDANSETRON [Concomitant]
     Active Substance: ONDANSETRON
     Indication: Vomiting
     Dosage: 1.5 MG/ 12H
     Route: 042
     Dates: start: 20220426
  7. METOPIMAZINE [Concomitant]
     Active Substance: METOPIMAZINE
     Indication: Vomiting
     Dosage: UNK
     Route: 048
     Dates: start: 20220430
  8. AMPHOTERICIN B [Concomitant]
     Active Substance: AMPHOTERICIN B
     Indication: Oral fungal infection
     Dosage: 1 ML/ 8 HOURS
     Route: 048
     Dates: start: 20220426
  9. VIALEBEX [Concomitant]
     Active Substance: ALBUMIN HUMAN
     Indication: Hypoalbuminaemia
     Dosage: 5 GRAM
     Route: 042
     Dates: start: 20220504
  10. BACTRIM [Concomitant]
     Active Substance: SULFAMETHOXAZOLE\TRIMETHOPRIM
     Indication: Antifungal prophylaxis
     Dosage: 150 MG/DAY THREE DAYS
     Route: 048
     Dates: start: 20220426
  11. CICLOVIRAL [ACICLOVIR SODIUM] [Concomitant]
     Indication: Hepatitis viral
     Dosage: 25 MG/DAY
     Route: 042
     Dates: start: 20220504
  12. CASPOFUNGINE ACCORD [Concomitant]
     Indication: Fungal infection
     Dosage: 14 MG/DAY
     Route: 042
     Dates: start: 20220426
  13. CEFRA [CEFIXIME] [Concomitant]
     Indication: Bacterial infection
     Dosage: 370 MG/12H
     Route: 042
     Dates: start: 20220504
  14. PROBENECID [Concomitant]
     Active Substance: PROBENECID
     Indication: Renal disorder prophylaxis
     Dosage: 150 MG/DAY EVERY 7 DAYS
     Route: 048
     Dates: start: 20220504
  15. NALBUPHINE [Concomitant]
     Active Substance: NALBUPHINE
     Indication: Pyrexia
     Dosage: 1 MG/4 HOURS
     Route: 042
     Dates: start: 20220426
  16. NALBUPHINE [Concomitant]
     Active Substance: NALBUPHINE
     Indication: Pain
  17. ACETAMINOPHEN [Concomitant]
     Active Substance: ACETAMINOPHEN
     Indication: Pyrexia
     Dosage: 50 MG/ 6 HOURS
     Route: 042
     Dates: start: 20220502
  18. ACETAMINOPHEN [Concomitant]
     Active Substance: ACETAMINOPHEN
     Indication: Pain
  19. CYTARABINE [Concomitant]
     Active Substance: CYTARABINE
     Indication: Acute myeloid leukaemia
     Dosage: UNK
     Dates: start: 20220401, end: 20220406
  20. MITOXANTRONE [Concomitant]
     Active Substance: MITOXANTRONE HYDROCHLORIDE
     Indication: Acute myeloid leukaemia
     Dosage: UNK
     Dates: start: 20220401, end: 20220406
  21. GEMTUZUMAB OZOGAMICIN [Concomitant]
     Active Substance: GEMTUZUMAB OZOGAMICIN
     Indication: Acute myeloid leukaemia
     Dosage: UNK
     Dates: start: 20220401, end: 20220406
  22. METHOTREXATE [Concomitant]
     Active Substance: METHOTREXATE
     Indication: Acute myeloid leukaemia
     Dosage: UNK
     Dates: start: 20220401, end: 20220406

REACTIONS (2)
  - Multiple organ dysfunction syndrome [Fatal]
  - Intentional underdose [Unknown]
